FAERS Safety Report 5268971-1 (Version None)
Quarter: 2007Q1

REPORT INFORMATION
  Report Type: 
  Country: None (occurrence: None)
  Receive Date: 20061214
  Receipt Date: 20060921
  Transmission Date: 20070707
  Serious: Yes (Other)
  Sender: FDA-Public Use
  Company Number: 2006114703

PATIENT
  Sex: Female
  Weight: 61.2356 kg

DRUGS (4)
  1. XANAX [Suspect]
     Indication: ANXIETY
     Dosage: 0.75 MG (0.25 MG, 3 IN 1 D)
     Dates: start: 20050101
  2. CYMBALTA [Suspect]
     Indication: ANXIETY
     Dosage: 120 MG (120 MG, FREQUENCY: QD INTERVAL: EVERYDAY)
     Dates: start: 20050101, end: 20060101
  3. CYMBALTA [Suspect]
     Indication: DEPRESSION
     Dosage: 120 MG (120 MG, FREQUENCY: QD INTERVAL: EVERYDAY)
     Dates: start: 20050101, end: 20060101
  4. ALL OTHER THERAPEUTIC PRODUCTS (ALL OTHER THERAPEUTIC PRODUCTS) [Concomitant]

REACTIONS (6)
  - ABDOMINAL PAIN UPPER [None]
  - ANXIETY [None]
  - CRYING [None]
  - DIARRHOEA [None]
  - DRUG DEPENDENCE [None]
  - MALAISE [None]
